FAERS Safety Report 8145441-4 (Version None)
Quarter: 2012Q1

REPORT INFORMATION
  Report Type: 
  Country: None (occurrence: None)
  Receive Date: 20120217
  Receipt Date: 20120210
  Transmission Date: 20120608
  Serious: Yes (Other)
  Sender: FDA-Public Use
  Company Number: US-US-EMD SERONO, INC.-7112907

PATIENT
  Sex: Female
  Weight: 100 kg

DRUGS (1)
  1. REBIF [Suspect]
     Indication: MULTIPLE SCLEROSIS
     Route: 058
     Dates: start: 20110701

REACTIONS (5)
  - DEHYDRATION [None]
  - KIDNEY INFECTION [None]
  - PAIN IN EXTREMITY [None]
  - HYPOAESTHESIA [None]
  - BACTERIAL INFECTION [None]
